FAERS Safety Report 21630414 (Version 1)
Quarter: 2022Q4

REPORT INFORMATION
  Report Type: Report from Study
  Country: US (occurrence: US)
  Receive Date: 20221122
  Receipt Date: 20221122
  Transmission Date: 20230112
  Serious: Yes (Other)
  Sender: FDA-Public Use
  Company Number: US-BRISTOL-MYERS SQUIBB COMPANY-2022-043158

PATIENT
  Age: 38 Year
  Sex: Female
  Weight: 70 kg

DRUGS (4)
  1. NIVOLUMAB [Suspect]
     Active Substance: NIVOLUMAB
     Indication: Product used for unknown indication
     Route: 050
     Dates: start: 20210819, end: 20210819
  2. NIVOLUMAB [Suspect]
     Active Substance: NIVOLUMAB
     Dosage: DRUG TAKEN BY THE FATHER INTRAVENOUSLY
     Route: 050
     Dates: start: 20220429, end: 20220429
  3. SERINE/THREONINE-PROTEIN KINASE 19 [Suspect]
     Active Substance: SERINE/THREONINE-PROTEIN KINASE 19
     Indication: Product used for unknown indication
     Route: 050
     Dates: start: 20210806, end: 20210806
  4. SERINE/THREONINE-PROTEIN KINASE 19 [Suspect]
     Active Substance: SERINE/THREONINE-PROTEIN KINASE 19
     Dosage: 1DF= 1 X 10E7 PFU/ML ?DRUG TAKEN BY THE FATHER INTRATUMORALLY
     Route: 050
     Dates: start: 20211111, end: 20211111

REACTIONS (4)
  - Unintended pregnancy [Unknown]
  - Exposure via body fluid [Unknown]
  - Gestational diabetes [Unknown]
  - Live birth [Unknown]

NARRATIVE: CASE EVENT DATE: 20220420
